FAERS Safety Report 4530922-2 (Version None)
Quarter: 2004Q4

REPORT INFORMATION
  Report Type: 
  Country: None (occurrence: None)
  Receive Date: 20041215
  Receipt Date: 20041209
  Transmission Date: 20050328
  Serious: Yes (Death, Hospitalization)
  Sender: FDA-Public Use
  Company Number: 2004UW24696

PATIENT
  Age: 80 Year
  Sex: Male
  Weight: 76.7 kg

DRUGS (7)
  1. IRESSA [Suspect]
     Indication: RECTAL CANCER
     Dosage: 250 MG QD PO
     Route: 048
  2. XELODA [Suspect]
     Indication: RECTAL CANCER
     Dosage: 650 MG/M2 Q12H
  3. LOPRESSOR [Concomitant]
  4. HYDROCHLOROTHIAZIDE [Concomitant]
  5. COMPAZINE [Concomitant]
  6. ZOFRAN [Concomitant]
  7. IMODIUM [Concomitant]

REACTIONS (4)
  - ACUTE RESPIRATORY DISTRESS SYNDROME [None]
  - ARTERIAL THROMBOSIS LIMB [None]
  - FAT EMBOLISM [None]
  - PNEUMONIA ASPIRATION [None]
